FAERS Safety Report 5175984-7 (Version None)
Quarter: 2006Q4

REPORT INFORMATION
  Report Type: 
  Country: None (occurrence: None)
  Receive Date: 20061215
  Receipt Date: 20060706
  Transmission Date: 20070319
  Serious: No
  Sender: FDA-Public Use
  Company Number: US-AMGEN-KDL185502

PATIENT
  Sex: Female

DRUGS (1)
  1. ENBREL [Suspect]
     Indication: RHEUMATOID ARTHRITIS
     Route: 058
     Dates: start: 19991101

REACTIONS (9)
  - ASTHENIA [None]
  - BACK PAIN [None]
  - CONTUSION [None]
  - FATIGUE [None]
  - HEADACHE [None]
  - NECK PAIN [None]
  - PRURITUS [None]
  - URTICARIA [None]
  - WEIGHT DECREASED [None]
